FAERS Safety Report 4721886-7 (Version None)
Quarter: 2005Q3

REPORT INFORMATION
  Report Type: 
  Country: None (occurrence: None)
  Receive Date: 20050721
  Receipt Date: 20050526
  Transmission Date: 20060218
  Serious: No
  Sender: FDA-Public Use
  Company Number: US-BRISTOL-MYERS SQUIBB COMPANY-12983417

PATIENT
  Age: 52 Year
  Sex: Male
  Weight: 110 kg

DRUGS (6)
  1. COUMADIN [Suspect]
     Indication: PULMONARY EMBOLISM
     Dosage: 4 MILLIGRAMS FOUR DAYS/ 3 MILLIGRAMS TWO DAYS
     Dates: start: 19980101
  2. BUMEX [Concomitant]
  3. LISINOPRIL [Concomitant]
  4. METOLAZONE [Concomitant]
  5. MONTELUKAST [Concomitant]
  6. SIMVASTATIN [Concomitant]

REACTIONS (1)
  - TEMPERATURE INTOLERANCE [None]
